FAERS Safety Report 5685376-X (Version None)
Quarter: 2008Q1

REPORT INFORMATION
  Report Type: 
  Country: None (occurrence: None)
  Receive Date: 20080328
  Receipt Date: 20080318
  Transmission Date: 20080703
  Serious: Yes (Other)
  Sender: FDA-Public Use
  Company Number: JP-PFIZER INC-2008025384

PATIENT
  Age: 50 Year
  Sex: Male

DRUGS (4)
  1. CABERGOLINE [Suspect]
     Indication: PARKINSON'S DISEASE
     Route: 048
  2. PRAMIPEXOLE DIHYDROCHLORIDE [Suspect]
     Indication: PARKINSON'S DISEASE
     Dosage: DAILY DOSE:300MG
  3. LEVODOPA W/BENSERAZIDE/ [Concomitant]
  4. SELEGILINE HCL [Concomitant]

REACTIONS (1)
  - SLEEP ATTACKS [None]
